FAERS Safety Report 5059923-5 (Version None)
Quarter: 2006Q3

REPORT INFORMATION
  Report Type: 
  Country: None (occurrence: None)
  Receive Date: 20060718
  Receipt Date: 20060628
  Transmission Date: 20061208
  Serious: Yes (Other)
  Sender: FDA-Public Use
  Company Number: CA200606006014

PATIENT
  Age: 71 Year
  Sex: Female

DRUGS (11)
  1. FORTEO [Suspect]
     Indication: OSTEOPOROSIS
     Dosage: 20 UG, DAILY (1/D)
     Dates: start: 20051001
  2. FORTEO PEN (FORTEO PEN) [Concomitant]
  3. AMITRIPTYLINE (AMITRIPTYLINE) [Concomitant]
  4. NADOLOL [Concomitant]
  5. PREMARIN [Concomitant]
  6. ASPIRIN [Concomitant]
  7. LIPITOR [Concomitant]
  8. CALCIUM (CALCIUM) [Concomitant]
  9. TYLENOL W/ CODEINE NO. 3 [Concomitant]
  10. MULTIVIT (VITAMINS NOS) [Concomitant]
  11. OXYCONTIN [Concomitant]

REACTIONS (5)
  - DIZZINESS [None]
  - FALL [None]
  - HEAD INJURY [None]
  - SCAN ABNORMAL [None]
  - SKIN LACERATION [None]
